FAERS Safety Report 6896499-1 (Version None)
Quarter: 2010Q3

REPORT INFORMATION
  Report Type: 
  Country: None (occurrence: None)
  Receive Date: 20100722
  Receipt Date: 20100708
  Transmission Date: 20110219
  Serious: Yes (Hospitalization, Other)
  Sender: FDA-Public Use
  Company Number: AEUSA201000260

PATIENT
  Sex: Male

DRUGS (4)
  1. GAMUNEX [Suspect]
     Indication: CHRONIC INFLAMMATORY DEMYELINATING POLYRADICULONEUROPATHY
     Dosage: 50 GM; QD; IV
     Route: 042
     Dates: start: 20100514, end: 20100612
  2. BENADRYL [Concomitant]
  3. ACETAMINOPHEN [Concomitant]
  4. SYNTHROID [Concomitant]

REACTIONS (2)
  - DRUG HYPERSENSITIVITY [None]
  - INFLUENZA LIKE ILLNESS [None]
